FAERS Safety Report 5199613-1 (Version None)
Quarter: 2007Q1

REPORT INFORMATION
  Report Type: 
  Country: None (occurrence: None)
  Receive Date: 20070102
  Receipt Date: 20070102
  Transmission Date: 20070707
  Serious: Yes (Hospitalization)
  Sender: FDA-Public Use
  Company Number: None

PATIENT
  Age: 60 Year
  Sex: Male
  Weight: 60 kg

DRUGS (5)
  1. PACLITAXEL 300 MG/500 ML NS [Suspect]
     Indication: NON-SMALL CELL LUNG CANCER
     Dosage: 7.8MG/13ML ONCE IV
     Route: 042
     Dates: start: 20060901, end: 20060901
  2. OMEPRAZOLE [Concomitant]
  3. ENOXAPARIN SODIUM [Concomitant]
  4. ONDANSETRON [Concomitant]
  5. DEXAMETHASONE [Concomitant]

REACTIONS (2)
  - CONVULSION [None]
  - INFUSION RELATED REACTION [None]
